FAERS Safety Report 11913725 (Version 7)
Quarter: 2020Q2

REPORT INFORMATION
  Report Type: Spontaneous
  Country: US (occurrence: US)
  Receive Date: 20160113
  Receipt Date: 20200427
  Transmission Date: 20200713
  Serious: Yes (Other)
  Sender: FDA-Public Use
  Company Number: US-PFIZER INC-2016007145

PATIENT
  Age: 70 Year
  Sex: Male

DRUGS (3)
  1. LYRICA [Suspect]
     Active Substance: PREGABALIN
     Indication: PAIN
  2. LYRICA [Suspect]
     Active Substance: PREGABALIN
     Indication: NEUROPATHY PERIPHERAL
     Dosage: 200 MG, 3X/DAY(270 CAPSULE, SIG:1 CAPSULE THREE TIMES A DAY 90 DAYS)
     Route: 048
  3. PREDNISONE. [Concomitant]
     Active Substance: PREDNISONE
     Indication: ADRENAL DISORDER
     Dosage: UNK

REACTIONS (7)
  - Product use in unapproved indication [Unknown]
  - Arthropathy [Unknown]
  - Malaise [Unknown]
  - Sciatica [Unknown]
  - Deafness [Unknown]
  - Off label use [Unknown]
  - Pain [Unknown]
